FAERS Safety Report 15109848 (Version 2)
Quarter: 2018Q3

REPORT INFORMATION
  Report Type: Spontaneous
  Country: IT (occurrence: IT)
  Receive Date: 20180705
  Receipt Date: 20180816
  Transmission Date: 20181010
  Serious: Yes (Life-Threatening)
  Sender: FDA-Public Use
  Company Number: IT-TEVA-2018-IT-918640

PATIENT
  Age: 41 Year
  Sex: Male

DRUGS (6)
  1. GARDENALE [Concomitant]
     Active Substance: PHENOBARBITAL
     Route: 065
  2. GABAPENTIN SANDOZ [Suspect]
     Active Substance: GABAPENTIN
     Indication: STATUS EPILEPTICUS
     Dosage: 2400 MILLIGRAM DAILY;
     Route: 048
  3. GABAPENTIN TEVA ITALIA [Suspect]
     Active Substance: GABAPENTIN
     Indication: STATUS EPILEPTICUS
     Dosage: 2400 MILLIGRAM DAILY;
     Route: 048
  4. GABAPENTIN FIDIA [Suspect]
     Active Substance: GABAPENTIN
     Indication: STATUS EPILEPTICUS
     Dosage: 2400 MILLIGRAM DAILY;
     Route: 048
  5. SINTROM [Concomitant]
     Active Substance: ACENOCOUMAROL
     Route: 065
  6. TOLEP [Concomitant]
     Active Substance: OXCARBAZEPINE
     Route: 065

REACTIONS (3)
  - Sleep attacks [Recovered/Resolved]
  - Somnolence [Recovered/Resolved]
  - Product substitution issue [Recovered/Resolved]

NARRATIVE: CASE EVENT DATE: 20110101
